FAERS Safety Report 4778827-6 (Version None)
Quarter: 2005Q3

REPORT INFORMATION
  Report Type: 
  Country: None (occurrence: None)
  Receive Date: 20050922
  Receipt Date: 20050628
  Transmission Date: 20060218
  Serious: Yes (Hospitalization)
  Sender: FDA-Public Use
  Company Number: T04-USA-02364-01

PATIENT
  Age: 77 Year
  Sex: Male

DRUGS (17)
  1. MEMANTINE HCL [Suspect]
     Indication: OPEN ANGLE GLAUCOMA
     Dosage: 20 MG QD PO
     Route: 048
     Dates: start: 20011201, end: 20040105
  2. PARACETAMOL [Concomitant]
  3. ATORVASTATIN [Concomitant]
  4. NITROGLYCERIN ^A.L.^ (GLYCERYL TRINITRATE) [Concomitant]
  5. CALCIUM CARBONATE [Concomitant]
  6. ASPIRIN [Concomitant]
  7. METOPROLOL SUCCINATE (METOPROLOL) [Concomitant]
  8. ISOSORBIDE [Concomitant]
  9. PROTONIX [Concomitant]
  10. BUSPIRONE HCL [Concomitant]
  11. LEVOTHYROXINE SODIUM (LEVOTHYROXINE) [Concomitant]
  12. BETACAROTENE [Concomitant]
  13. ASCORBIC ACID [Concomitant]
  14. MULTIPLE VITAMIN [Concomitant]
  15. SELENIUM SULFIDE [Concomitant]
  16. VITAMIN E [Concomitant]
  17. VITAMIN D [Concomitant]

REACTIONS (9)
  - ABNORMAL BEHAVIOUR [None]
  - BIPOLAR DISORDER [None]
  - COGNITIVE DETERIORATION [None]
  - CONDITION AGGRAVATED [None]
  - DEPRESSION [None]
  - INTENTIONAL SELF-INJURY [None]
  - PRESSURE OF SPEECH [None]
  - SLEEP APNOEA SYNDROME [None]
  - UPPER RESPIRATORY TRACT INFECTION [None]
